FAERS Safety Report 4870221-2 (Version None)
Quarter: 2005Q4

REPORT INFORMATION
  Report Type: 
  Country: None (occurrence: None)
  Receive Date: 20051228
  Receipt Date: 20051214
  Transmission Date: 20060501
  Serious: Yes (Hospitalization)
  Sender: FDA-Public Use
  Company Number: DE200512002411

PATIENT
  Sex: Female

DRUGS (1)
  1. YENTREVE(DULOXETINE HYDROCHLORIDE) CAPSULE [Suspect]
     Indication: STRESS INCONTINENCE
     Dosage: 40 MG, 2/D; ORAL
     Route: 048
     Dates: start: 20050509, end: 20051201

REACTIONS (3)
  - PYELONEPHRITIS [None]
  - RESIDUAL URINE VOLUME [None]
  - URINARY TRACT INFECTION [None]
